FAERS Safety Report 8877200 (Version 3)
Quarter: 2013Q2

REPORT INFORMATION
  Report Type: Report from Study
  Country: US (occurrence: US)
  Receive Date: 20121030
  Receipt Date: 20130425
  Transmission Date: 20140414
  Serious: Yes (Hospitalization)
  Sender: FDA-Public Use
  Company Number: US-ACTELION-A-NJ2012-73414

PATIENT
  Age: 86 Year
  Sex: Male

DRUGS (13)
  1. TRACLEER [Suspect]
     Indication: PULMONARY ARTERIAL HYPERTENSION
     Dosage: 125 MG, BID
     Route: 048
     Dates: start: 200312
  2. TRACLEER [Suspect]
     Dosage: 62.5, MG
     Route: 048
     Dates: start: 2003, end: 2003
  3. COUMADIN [Concomitant]
     Dosage: 5 MG, BID
     Dates: start: 1960
  4. LEXAPRO [Concomitant]
     Dosage: 5 MG (TITER), UNK
     Dates: start: 2007
  5. PROTONIX [Concomitant]
     Dosage: 40 MG, UNK
     Dates: start: 2007
  6. CRESTOR [Concomitant]
     Dosage: 20 MG, QD
     Dates: start: 2007
  7. ZETIA [Concomitant]
     Dosage: 10 MG, QD
     Dates: start: 2007
  8. TRAZODONE [Concomitant]
     Dosage: 25 MG, QD
     Dates: start: 2007
  9. RANEXA [Concomitant]
     Dosage: 1000 MG, UNK
     Dates: start: 2007
  10. TRICOR [Concomitant]
     Dosage: 145 MG, QD
  11. ROPINIROLE [Concomitant]
     Dosage: 0.25 MG, QD
  12. COZAAR [Concomitant]
     Dosage: 50 MG, QD
  13. NORVASC [Concomitant]
     Dosage: 2.5 MG, QD

REACTIONS (9)
  - Haemorrhage [Unknown]
  - Transfusion [Unknown]
  - Fall [Recovered/Resolved]
  - Contusion [Recovered/Resolved]
  - Laceration [Recovered/Resolved]
  - Weight decreased [Not Recovered/Not Resolved]
  - Local swelling [Recovering/Resolving]
  - Blood pressure decreased [Recovered/Resolved]
  - Chest pain [Not Recovered/Not Resolved]
